FAERS Safety Report 15840456 (Version 1)
Quarter: 2019Q1

REPORT INFORMATION
  Report Type: Spontaneous
  Country: IT (occurrence: IT)
  Receive Date: 20190118
  Receipt Date: 20190118
  Transmission Date: 20190417
  Serious: Yes (Hospitalization)
  Sender: FDA-Public Use
  Company Number: IT-ASTRAZENECA-2019SE07083

PATIENT
  Age: 86 Year
  Sex: Male

DRUGS (4)
  1. SEROQUEL [Suspect]
     Active Substance: QUETIAPINE FUMARATE
     Indication: MEDICATION ERROR
     Dosage: 100.0MG ONCE/SINGLE ADMINISTRATION
     Route: 048
     Dates: start: 20181216, end: 20181216
  2. ISOPTIN [Suspect]
     Active Substance: VERAPAMIL HYDROCHLORIDE
     Indication: MEDICATION ERROR
     Dosage: 40.0MG ONCE/SINGLE ADMINISTRATION
     Route: 048
     Dates: start: 20181216, end: 20181216
  3. TARGIN [Suspect]
     Active Substance: NALOXONE HYDROCHLORIDE\OXYCODONE HYDROCHLORIDE
     Indication: MEDICATION ERROR
     Dosage: 5.0MG ONCE/SINGLE ADMINISTRATION
     Route: 048
     Dates: start: 20181216, end: 20181216
  4. DEPAKIN [Suspect]
     Active Substance: VALPROATE SODIUM
     Indication: MEDICATION ERROR
     Dosage: 200.0MG ONCE/SINGLE ADMINISTRATION
     Route: 048
     Dates: start: 20181216, end: 20181216

REACTIONS (1)
  - Sopor [Recovering/Resolving]

NARRATIVE: CASE EVENT DATE: 20181216
